FAERS Safety Report 6913555-X (Version None)
Quarter: 2010Q3

REPORT INFORMATION
  Report Type: 
  Country: None (occurrence: None)
  Receive Date: 20100803
  Receipt Date: 20100722
  Transmission Date: 20110219
  Serious: Yes (Death)
  Sender: FDA-Public Use
  Company Number: ENTC2010-0248

PATIENT
  Sex: Female

DRUGS (4)
  1. STALEVO 100 [Suspect]
  2. EXELON [Suspect]
     Indication: PARKINSON'S DISEASE
     Dosage: 9.5 MG/24 HRS TRANSDERMAL
     Route: 062
     Dates: start: 20091221, end: 20100115
  3. CORASPIN [Concomitant]
  4. PEXOLA [Concomitant]

REACTIONS (2)
  - HYPERHIDROSIS [None]
  - SOMNOLENCE [None]
